FAERS Safety Report 17188275 (Version 6)
Quarter: 2020Q2

REPORT INFORMATION
  Report Type: Report from Study
  Country: CO (occurrence: CO)
  Receive Date: 20191221
  Receipt Date: 20200504
  Transmission Date: 20200713
  Serious: Yes (Hospitalization, Other)
  Sender: FDA-Public Use
  Company Number: PHHY2019CO210936

PATIENT
  Age: 56 Year
  Sex: Male
  Weight: 70 kg

DRUGS (9)
  1. JADENU [Suspect]
     Active Substance: DEFERASIROX
     Dosage: 1080 MG
     Route: 048
     Dates: start: 20190506
  2. REVOLADE [Suspect]
     Active Substance: ELTROMBOPAG
     Indication: APLASTIC ANAEMIA
     Dosage: 150 MG, QD
     Route: 048
     Dates: start: 201901
  3. REVOLADE [Suspect]
     Active Substance: ELTROMBOPAG
     Dosage: 150 MG, QD
     Route: 048
     Dates: start: 201904
  4. ACICLOVIR [Concomitant]
     Active Substance: ACYCLOVIR
     Indication: PRODUCT USED FOR UNKNOWN INDICATION
     Route: 065
  5. CYCLOSPORINE. [Suspect]
     Active Substance: CYCLOSPORINE
     Indication: IRON OVERLOAD
     Route: 065
  6. JADENU [Suspect]
     Active Substance: DEFERASIROX
     Indication: APLASTIC ANAEMIA
     Dosage: 1080 MG, QD
     Route: 048
     Dates: start: 20190305
  7. REVOLADE [Suspect]
     Active Substance: ELTROMBOPAG
     Dosage: 150 MG, QD ( 3 X 50 MG)
     Route: 048
     Dates: start: 20190305
  8. JADENU [Suspect]
     Active Substance: DEFERASIROX
     Dosage: 1080 MG, QD (3 OF 360 MG)
     Route: 048
     Dates: start: 201907, end: 201911
  9. ESOMEPRAZOLE. [Concomitant]
     Active Substance: ESOMEPRAZOLE MAGNESIUM
     Indication: PRODUCT USED FOR UNKNOWN INDICATION
     Route: 065

REACTIONS (13)
  - Blood creatinine abnormal [Unknown]
  - Blood creatinine increased [Unknown]
  - Blood iron increased [Recovering/Resolving]
  - Red blood cell count decreased [Unknown]
  - Gingival bleeding [Unknown]
  - Petechiae [Unknown]
  - Platelet count decreased [Unknown]
  - Renal disorder [Unknown]
  - Drug intolerance [Unknown]
  - Serum ferritin increased [Unknown]
  - Drug ineffective [Unknown]
  - Pyrexia [Recovered/Resolved]
  - Aplastic anaemia [Unknown]

NARRATIVE: CASE EVENT DATE: 201910
